FAERS Safety Report 5043585-7 (Version None)
Quarter: 2006Q3

REPORT INFORMATION
  Report Type: 
  Country: None (occurrence: None)
  Receive Date: 20060706
  Receipt Date: 20060627
  Transmission Date: 20061208
  Serious: Yes (Other)
  Sender: FDA-Public Use
  Company Number: PT-JNJFOC-20060605282

PATIENT
  Age: 45 Year
  Sex: Male

DRUGS (2)
  1. REMICADE [Suspect]
     Indication: CROHN'S DISEASE
     Dosage: 4 INFUSIONS IN TOTAL
     Route: 042
  2. AZATHIOPRINE [Concomitant]
     Route: 065

REACTIONS (4)
  - ANAL CANCER [None]
  - ANAL FISTULA [None]
  - IMPAIRED HEALING [None]
  - SQUAMOUS CELL CARCINOMA [None]
